FAERS Safety Report 6809072 (Version 6)
Quarter: 2018Q4

REPORT INFORMATION
  Report Type: Report from Study
  Country: JP (occurrence: JP)
  Receive Date: 20081112
  Receipt Date: 20181228
  Transmission Date: 20190205
  Serious: Yes (Hospitalization, Other)
  Sender: FDA-Public Use
  Company Number: PHHO2007JP11009

PATIENT
  Age: 28 Year
  Sex: Male
  Weight: 53 kg

DRUGS (43)
  1. TASIGNA [Suspect]
     Active Substance: NILOTINIB
     Indication: ACUTE LYMPHOCYTIC LEUKAEMIA
     Dosage: 400 MG, QD
     Route: 048
     Dates: start: 20060509, end: 20060509
  2. TASIGNA [Suspect]
     Active Substance: NILOTINIB
     Dosage: 500 MG, BID
     Route: 048
     Dates: start: 20060605, end: 20060605
  3. TASIGNA [Suspect]
     Active Substance: NILOTINIB
     Dosage: 400 MG, QD
     Route: 048
     Dates: start: 20060620, end: 20060703
  4. GLIVEC [Concomitant]
     Active Substance: IMATINIB MESYLATE
     Indication: CHRONIC MYELOID LEUKAEMIA
     Dosage: 400 MG, QD
     Route: 048
     Dates: start: 20060826, end: 20061008
  5. NEGMIN [Concomitant]
     Indication: STOMATITIS
     Dosage: UNK
     Route: 065
  6. ADONA [Concomitant]
     Indication: PRODUCT USED FOR UNKNOWN INDICATION
     Route: 065
  7. MYSER [Concomitant]
     Indication: PRODUCT USED FOR UNKNOWN INDICATION
     Route: 065
  8. POSTERISAN [Concomitant]
     Active Substance: LIDOCAINE
     Indication: PRODUCT USED FOR UNKNOWN INDICATION
     Route: 065
  9. HACHIAZULE [Concomitant]
     Indication: MOUTH ULCERATION
     Dosage: UNK
     Route: 065
  10. FLOMOX [Concomitant]
     Active Substance: CEFCAPENE PIVOXIL HYDROCHLORIDE HYDRATE
     Indication: NASOPHARYNGITIS
     Route: 065
  11. LOXONIN [Concomitant]
     Active Substance: LOXOPROFEN SODIUM
     Indication: PYREXIA
     Dosage: UNK
     Route: 065
  12. DASEN [Concomitant]
     Active Substance: SERRAPEPTASE
     Indication: NASOPHARYNGITIS
     Dosage: UNK
     Route: 065
  13. GASTER [Concomitant]
     Active Substance: FAMOTIDINE
     Indication: PRODUCT USED FOR UNKNOWN INDICATION
     Route: 065
  14. TASIGNA [Suspect]
     Active Substance: NILOTINIB
     Dosage: 300 MG, BID
     Route: 048
     Dates: start: 20060606, end: 20060606
  15. TASIGNA [Suspect]
     Active Substance: NILOTINIB
     Dosage: 200 MG, QD
     Route: 048
     Dates: start: 20060802, end: 20060804
  16. CRAVIT [Concomitant]
     Active Substance: LEVOFLOXACIN
     Indication: NASOPHARYNGITIS
     Dosage: UNK
     Route: 065
  17. SOLITA T [Concomitant]
     Indication: EATING DISORDER
     Dosage: UNK
     Route: 065
  18. PHENOBAL [Concomitant]
     Active Substance: PHENOBARBITAL
     Indication: PRODUCT USED FOR UNKNOWN INDICATION
     Route: 065
  19. SODIUM ALGINATE [Concomitant]
     Active Substance: SODIUM ALGINATE
     Indication: PRODUCT USED FOR UNKNOWN INDICATION
     Route: 065
  20. GASTER [Concomitant]
     Active Substance: FAMOTIDINE
     Indication: PRODUCT USED FOR UNKNOWN INDICATION
     Route: 065
  21. TASIGNA [Suspect]
     Active Substance: NILOTINIB
     Dosage: 400 MG, BID
     Route: 048
     Dates: start: 20060510, end: 20060604
  22. FLOMAX [Concomitant]
     Active Substance: TAMSULOSIN HYDROCHLORIDE
     Indication: NASOPHARYNGITIS
     Dosage: UNK
     Route: 065
  23. SOSEGON [Concomitant]
     Active Substance: PENTAZOCINE
     Indication: PRODUCT USED FOR UNKNOWN INDICATION
     Route: 065
  24. TASIGNA [Suspect]
     Active Substance: NILOTINIB
     Dosage: 400 MG, BID
     Route: 048
     Dates: start: 20060607, end: 20060619
  25. TASIGNA [Suspect]
     Active Substance: NILOTINIB
     Dosage: 400 MG, QD
     Route: 048
     Dates: start: 20060718, end: 20060721
  26. TASIGNA [Suspect]
     Active Substance: NILOTINIB
     Dosage: 400 MG, QD
     Route: 048
     Dates: start: 20060805, end: 20060825
  27. GLIVEC [Concomitant]
     Active Substance: IMATINIB MESYLATE
     Dosage: 200 MG, QD
     Route: 048
     Dates: start: 20061028, end: 20061105
  28. VEEN D [Concomitant]
     Active Substance: CALCIUM CHLORIDE\DEXTROSE\POTASSIUM CHLORIDE\SODIUM ACETATE\SODIUM CHLORIDE
     Indication: EATING DISORDER
     Dosage: UNK
     Route: 065
  29. URSO [Concomitant]
     Active Substance: URSODIOL
     Indication: BLOOD BILIRUBIN INCREASED
     Dosage: UNK
     Route: 065
  30. VENILON [Concomitant]
     Active Substance: HUMAN IMMUNOGLOBULIN G
     Indication: PRODUCT USED FOR UNKNOWN INDICATION
     Route: 065
  31. DIFLUCAN [Concomitant]
     Active Substance: FLUCONAZOLE
     Indication: PRODUCT USED FOR UNKNOWN INDICATION
     Route: 065
  32. BAKTAR [Concomitant]
     Active Substance: SULFAMETHOXAZOLE\TRIMETHOPRIM
     Indication: PRODUCT USED FOR UNKNOWN INDICATION
     Route: 065
  33. CEFAMEZIN [Concomitant]
     Active Substance: CEFAZOLIN
     Indication: PRODUCT USED FOR UNKNOWN INDICATION
     Route: 065
  34. NEORAL [Suspect]
     Active Substance: CYCLOSPORINE
     Indication: UNRELATED DONOR BONE MARROW TRANSPLANTATION THERAPY
     Dosage: UNK
     Route: 065
  35. GLIVEC [Concomitant]
     Active Substance: IMATINIB MESYLATE
     Dosage: 400 MG, QD
     Route: 048
     Dates: start: 20061106
  36. INDOMETACIN [Concomitant]
     Active Substance: INDOMETHACIN
     Indication: ORAL PAIN
     Dosage: UNK
     Route: 065
  37. NEO-MINOPHAGEN C [Concomitant]
     Active Substance: AMMONIUM GLYCYRRHIZATE
     Indication: PRODUCT USED FOR UNKNOWN INDICATION
     Dosage: UNK
     Route: 065
  38. VALTREX [Concomitant]
     Active Substance: VALACYCLOVIR HYDROCHLORIDE
     Indication: PRODUCT USED FOR UNKNOWN INDICATION
     Dosage: UNK
     Route: 065
  39. SELBEX [Concomitant]
     Active Substance: TEPRENONE
     Indication: ABDOMINAL DISCOMFORT
     Dosage: UNK
     Route: 065
  40. ASVERIN (TIPEPIDINE HIBENZATE) [Concomitant]
     Active Substance: TIPEPIDINE HIBENZATE
     Indication: NASOPHARYNGITIS
     Dosage: UNK
     Route: 065
  41. TRANSAMIN [Concomitant]
     Active Substance: TRANEXAMIC ACID
     Indication: PRODUCT USED FOR UNKNOWN INDICATION
     Dosage: UNK
     Route: 065
  42. TASIGNA [Suspect]
     Active Substance: NILOTINIB
     Dosage: 400 MG, BID
     Route: 048
     Dates: start: 20060704, end: 20060717
  43. ZOVIRAX [Concomitant]
     Active Substance: ACYCLOVIR
     Indication: PRODUCT USED FOR UNKNOWN INDICATION
     Dosage: UNK
     Route: 065

REACTIONS (33)
  - Condition aggravated [Not Recovered/Not Resolved]
  - Bronchitis [Recovering/Resolving]
  - Device related infection [Unknown]
  - Intracranial pressure increased [Unknown]
  - Encephalitis [Unknown]
  - Acute lymphocytic leukaemia recurrent [Unknown]
  - Staphylococcal infection [Unknown]
  - Brain oedema [Recovering/Resolving]
  - Ear disorder [Recovering/Resolving]
  - Meningitis fungal [Unknown]
  - Dizziness postural [Not Recovered/Not Resolved]
  - Loss of consciousness [Not Recovered/Not Resolved]
  - Aspartate aminotransferase increased [Recovering/Resolving]
  - Herpes simplex [Recovering/Resolving]
  - Central nervous system leukaemia [Recovering/Resolving]
  - CSF cell count increased [Recovering/Resolving]
  - Liver disorder [Recovering/Resolving]
  - Blast crisis in myelogenous leukaemia [Unknown]
  - Blast cells present [Recovering/Resolving]
  - Eating disorder [Unknown]
  - Pancytopenia [Recovering/Resolving]
  - Dizziness [Recovering/Resolving]
  - Cerebral ventricle dilatation [Not Recovered/Not Resolved]
  - Headache [Not Recovered/Not Resolved]
  - Mouth ulceration [Recovering/Resolving]
  - Pyrexia [Unknown]
  - Candida infection [Unknown]
  - Hepatitis viral [Recovering/Resolving]
  - Alanine aminotransferase increased [Recovering/Resolving]
  - Neck pain [Not Recovered/Not Resolved]
  - Oral pain [Recovering/Resolving]
  - Hydrocephalus [Recovering/Resolving]
  - Pineal neoplasm [Recovering/Resolving]

NARRATIVE: CASE EVENT DATE: 20060512
